FAERS Safety Report 25035557 (Version 1)
Quarter: 2025Q1

REPORT INFORMATION
  Report Type: Spontaneous
  Country: US (occurrence: US)
  Receive Date: 20250304
  Receipt Date: 20250304
  Transmission Date: 20250409
  Serious: No
  Sender: Kenvue
  Company Number: US-KENVUE-20250202386

PATIENT
  Age: 87 Year
  Sex: Male

DRUGS (2)
  1. PEPCID AC [Suspect]
     Active Substance: FAMOTIDINE
     Indication: Dysgeusia
     Dosage: 1 DOSAGE FORM, ONCE A DAY
     Route: 065
     Dates: start: 20250205
  2. chemotherapy drug [Concomitant]
     Indication: Non-Hodgkin^s lymphoma

REACTIONS (4)
  - Gait disturbance [Unknown]
  - Dizziness [Unknown]
  - Product lot number issue [Unknown]
  - Off label use [Unknown]

NARRATIVE: CASE EVENT DATE: 20250205
